FAERS Safety Report 4525168-8 (Version None)
Quarter: 2004Q4

REPORT INFORMATION
  Report Type: 
  Country: None (occurrence: None)
  Receive Date: 20041210
  Receipt Date: 20041129
  Transmission Date: 20050328
  Serious: Yes (Hospitalization, Other)
  Sender: FDA-Public Use
  Company Number: HQWYE259520JUL04

PATIENT
  Age: 53 Year
  Sex: Female
  Weight: 62.33 kg

DRUGS (16)
  1. RAPAMUNE [Suspect]
     Indication: PROPHYLAXIS AGAINST TRANSPLANT REJECTION
     Dosage: SEE IMAGE
     Dates: start: 20040512, end: 20040101
  2. RAPAMUNE [Suspect]
     Indication: PROPHYLAXIS AGAINST TRANSPLANT REJECTION
     Dosage: SEE IMAGE
     Dates: start: 20040101, end: 20040701
  3. RAPAMUNE [Suspect]
     Indication: PROPHYLAXIS AGAINST TRANSPLANT REJECTION
     Dosage: SEE IMAGE
     Dates: start: 20040701, end: 20040701
  4. RAPAMUNE [Suspect]
     Indication: PROPHYLAXIS AGAINST TRANSPLANT REJECTION
     Dosage: SEE IMAGE
     Dates: start: 20040701
  5. ATENOLOL [Concomitant]
  6. NORVASC [Concomitant]
  7. ACCUPRIL [Concomitant]
  8. COUMADIN [Concomitant]
  9. LASIX [Concomitant]
  10. SYNTHROID [Concomitant]
  11. PROTONIX [Concomitant]
  12. FOSAMAX [Concomitant]
  13. LANTUS [Concomitant]
  14. HUMALOG [Concomitant]
  15. PREDNISONE [Concomitant]
  16. PREDNISONE [Concomitant]

REACTIONS (2)
  - HEPATOTOXICITY [None]
  - LIVER TRANSPLANT REJECTION [None]
